FAERS Safety Report 24609311 (Version 1)
Quarter: 2024Q4

REPORT INFORMATION
  Report Type: Spontaneous
  Country: US (occurrence: None)
  Receive Date: 20241112
  Receipt Date: 20241112
  Transmission Date: 20250115
  Serious: Yes (Hospitalization)
  Sender: Public
  Company Number: None

PATIENT
  Sex: Female

DRUGS (2)
  1. TETRABENAZINE [Suspect]
     Active Substance: TETRABENAZINE
     Indication: Chorea
     Dosage: FREQ: TAKE 2 TABLETS BY MOUTH EVERY MORNING, TAKE 1 TABLET BY MOUTH AT NOON AND TAKE 3 TABLETS BY MO
     Route: 048
     Dates: start: 20170606
  2. BENZTROPINE [Concomitant]
     Active Substance: BENZTROPINE

REACTIONS (2)
  - Therapy interrupted [None]
  - Hospitalisation [None]
